FAERS Safety Report 20465691 (Version 3)
Quarter: 2022Q1

REPORT INFORMATION
  Report Type: Report from Study
  Country: HR (occurrence: None)
  Receive Date: 20220212
  Receipt Date: 20220313
  Transmission Date: 20220424
  Serious: Yes (Hospitalization)
  Sender: FDA-Public Use
  Company Number: HR-ROCHE-3016285

PATIENT
  Age: 54 Year
  Sex: Female
  Weight: 82 kg

DRUGS (22)
  1. OCRELIZUMAB [Suspect]
     Active Substance: OCRELIZUMAB
     Indication: Relapsing-remitting multiple sclerosis
     Dosage: OLE-WEEK 0. SHE RECEIVED NEXT DOE OF OPEN LABEL OCRELIZUMAB ON: 07/APR/2014 (OLE-WEEK 2).?300 MG INF
     Route: 042
     Dates: start: 20140324
  2. OCRELIZUMAB [Suspect]
     Active Substance: OCRELIZUMAB
     Dosage: NEXT DOSE RECEIVED ON: 26/FEB/2015, 06/AUG/2015, 25/JAN/2016, 08/JUL/2016, 27/DEC/2016, 09/JUN/2017,
     Route: 042
     Dates: start: 20140910, end: 20140910
  3. OCRELIZUMAB [Suspect]
     Active Substance: OCRELIZUMAB
     Indication: Relapsing-remitting multiple sclerosis
     Dosage: BASELINE (WEEK 1)?SHE RECEIVED HER NEXT DOSE OF BLINDED OCRELIZUMAB ON 01/JUN/2012 (WEEK 2).
     Route: 042
     Dates: start: 20120425, end: 20120425
  4. OCRELIZUMAB [Suspect]
     Active Substance: OCRELIZUMAB
     Dosage: WEEK 24?SHE RECEIVED HER NEXT DOSE OF BLINDED OCRELIZUMAB ON 27/MAR/2013 (WEEK 48 AND ON 11/SEP/2013
     Route: 042
     Dates: start: 20121022, end: 20121022
  5. PLACEBO [Suspect]
     Active Substance: UNSPECIFIED INGREDIENT
     Indication: Relapsing-remitting multiple sclerosis
     Route: 058
     Dates: start: 20120425, end: 20120425
  6. PLACEBO [Suspect]
     Active Substance: UNSPECIFIED INGREDIENT
     Route: 058
     Dates: start: 20140228, end: 20140321
  7. ACETAMINOPHEN [Concomitant]
     Active Substance: ACETAMINOPHEN
     Dosage: NEXT DOSE ON: 01/JUN/2012
     Dates: start: 20120425
  8. CHLOROPYRAMINE HYDROCHLORIDE [Concomitant]
     Active Substance: CHLOROPYRAMINE HYDROCHLORIDE
     Dosage: SUBSEQUENT DOSE WAS RECEIVED ON: 01/JUN/2012, 27/MAR/2013, 27/MAR/2013, 22/OCT/2012, 11/SEP/2013, 2
     Dates: start: 20120425, end: 20120425
  9. METHYLPREDNISOLONE [Concomitant]
     Active Substance: METHYLPREDNISOLONE
     Dosage: SUBSEQUENT DOSE WAS RECEIVED ON: 01/JUN/2012, 27/MAR/2013, 27/MAR/2013, 22/OCT/2012, 11/SEP/2013, 2
     Dates: start: 20120425, end: 20120425
  10. ACETAMINOPHEN [Concomitant]
     Active Substance: ACETAMINOPHEN
     Dosage: SUBSEQUENT DOSE WAS RECEIVED ON: 27/MAR/2013, 22/OCT/2012, 11/SEP/2013, 26/FEB/2015, 06/AUG/2015, 2
     Dates: start: 20121022, end: 20121022
  11. IBUPROFEN [Concomitant]
     Active Substance: IBUPROFEN
     Indication: Pain
     Dates: start: 201511
  12. IBUPROFEN [Concomitant]
     Active Substance: IBUPROFEN
     Indication: Pyrexia
     Dates: start: 2005
  13. IBUPROFEN [Concomitant]
     Active Substance: IBUPROFEN
     Indication: Pain in extremity
     Dates: start: 20131101, end: 20131105
  14. IBUPROFEN [Concomitant]
     Active Substance: IBUPROFEN
     Dates: start: 20160125, end: 20160125
  15. ESCITALOPRAM [Concomitant]
     Active Substance: ESCITALOPRAM OXALATE
     Dates: start: 20161118
  16. AMLODIPINE\PERINDOPRIL [Concomitant]
     Active Substance: AMLODIPINE\PERINDOPRIL
     Indication: Hypertension
     Dates: start: 20161118
  17. ALPRAZOLAM [Concomitant]
     Active Substance: ALPRAZOLAM
     Indication: Dysphagia
     Dates: start: 20151121
  18. PANTOPRAZOLE SODIUM [Concomitant]
     Active Substance: PANTOPRAZOLE SODIUM
     Indication: Gastritis
     Dates: start: 20200115
  19. PREGABALIN [Concomitant]
     Active Substance: PREGABALIN
     Indication: Pain in extremity
  20. DIAZEPAM [Concomitant]
     Active Substance: DIAZEPAM
     Dates: start: 2015
  21. FRESUBIN CREME [Concomitant]
     Indication: Dysphagia
     Dates: start: 20151120
  22. ACETAMINOPHEN\TRAMADOL [Concomitant]
     Active Substance: ACETAMINOPHEN\TRAMADOL
     Dates: start: 2015

REACTIONS (1)
  - Pulmonary embolism [Recovered/Resolved]

NARRATIVE: CASE EVENT DATE: 20220101
